FAERS Safety Report 7626168-1 (Version None)
Quarter: 2011Q3

REPORT INFORMATION
  Report Type: 
  Country: None (occurrence: None)
  Receive Date: 20110721
  Receipt Date: 20110708
  Transmission Date: 20111222
  Serious: Yes (Other)
  Sender: FDA-Public Use
  Company Number: PHHY2011HU48459

PATIENT
  Age: 77 Year
  Sex: Female

DRUGS (3)
  1. ZOLEDRONOC ACID [Suspect]
     Indication: OSTEOPOROSIS
     Dosage: 5 MG, PER YEAR DOSE
     Route: 042
     Dates: start: 20100304
  2. CALCIUM CARBONATE [Concomitant]
     Dosage: UNK UKN, UNK
     Dates: start: 20100304
  3. VITAMIN D [Concomitant]
     Dosage: 1000 NE, DAILY
     Dates: start: 20100304

REACTIONS (8)
  - ARTHRALGIA [None]
  - BONE PAIN [None]
  - SWELLING [None]
  - PAIN IN EXTREMITY [None]
  - MUSCULOSKELETAL PAIN [None]
  - ASTHENIA [None]
  - POLYARTHRITIS [None]
  - ARTHRITIS [None]
